FAERS Safety Report 9109769 (Version 1)
Quarter: 2013Q1

REPORT INFORMATION
  Report Type: Spontaneous
  Country: US (occurrence: US)
  Receive Date: 20130222
  Receipt Date: 20130222
  Transmission Date: 20140127
  Serious: No
  Sender: FDA-Public Use
  Company Number: US-PFIZER INC-2013065686

PATIENT
  Age: 57 Year
  Sex: Female
  Weight: 70.3 kg

DRUGS (2)
  1. CHANTIX [Suspect]
     Indication: SMOKING CESSATION THERAPY
     Dosage: 0.5 MG, 1X/DAY
     Route: 048
     Dates: start: 201211
  2. CHANTIX [Suspect]
     Dosage: 1 MG, 1X/DAY
     Route: 048

REACTIONS (2)
  - Oral disorder [Not Recovered/Not Resolved]
  - Incorrect dose administered [Unknown]
